FAERS Safety Report 8682196 (Version 2)
Quarter: 2012Q4

REPORT INFORMATION
  Report Type: Report from Study
  Country: JP (occurrence: JP)
  Receive Date: 20120725
  Receipt Date: 20121203
  Transmission Date: 20130627
  Serious: Yes (Hospitalization)
  Sender: FDA-Public Use
  Company Number: JP-CELGENEUS-087-21880-12071722

PATIENT
  Age: 78 Year
  Sex: Female
  Weight: 51 kg

DRUGS (6)
  1. REVLIMID [Suspect]
     Indication: MULTIPLE MYELOMA
     Dosage: 10 Milligram
     Route: 048
     Dates: start: 20110610, end: 20111222
  2. REVLIMID [Suspect]
     Dosage: 10 Milligram
     Route: 048
     Dates: start: 20120315, end: 20120419
  3. LENADEX [Suspect]
     Indication: MULTIPLE MYELOMA
     Dosage: 8 Milligram
     Route: 048
     Dates: start: 20110514, end: 20120402
  4. BAKTAR [Concomitant]
     Indication: PROPHYLAXIS
     Dosage: 2 Tablet
     Route: 048
     Dates: start: 20071214, end: 20120614
  5. ONEALFA [Concomitant]
     Indication: OSTEOPOROSIS
     Dosage: .5 Microgram
     Route: 048
     Dates: start: 200707, end: 20120614
  6. ZOMETA [Concomitant]
     Indication: MULTIPLE MYELOMA
     Dosage: 4 Milligram
     Route: 041
     Dates: start: 200707, end: 20120614

REACTIONS (2)
  - Autoimmune hepatitis [Recovering/Resolving]
  - Fibrin degradation products increased [Recovered/Resolved]
